FAERS Safety Report 26188629 (Version 1)
Quarter: 2025Q4

REPORT INFORMATION
  Report Type: Report from Study
  Country: US (occurrence: US)
  Receive Date: 20251222
  Receipt Date: 20251222
  Transmission Date: 20260119
  Serious: Yes (Other)
  Sender: ABBVIE
  Company Number: US-ABBVIE-6601778

PATIENT
  Age: 77 Year
  Sex: Female

DRUGS (2)
  1. SKYRIZI [Suspect]
     Active Substance: RISANKIZUMAB-RZAA
     Indication: Psoriasis
     Dosage: WEEK 0?DID NOT RECEIVE THE WEEK 4 DOSE DUE TO SURGERY.
     Route: 058
     Dates: start: 20250818, end: 20250818
  2. SKYRIZI [Suspect]
     Active Substance: RISANKIZUMAB-RZAA
     Dosage: WEEK 0?TITRATION DOSING: 150 MG INJECT 1 PEN UNDER THE SKIN AT WEEK 0 14 DEC 2025, WEEK 4, THEN E...
     Route: 058
     Dates: start: 20251214

REACTIONS (1)
  - Knee arthroplasty [Unknown]

NARRATIVE: CASE EVENT DATE: 20251001
